FAERS Safety Report 9808018 (Version 1)
Quarter: 2014Q1

REPORT INFORMATION
  Report Type: Spontaneous
  Country: TR (occurrence: TR)
  Receive Date: 20140110
  Receipt Date: 20140110
  Transmission Date: 20141002
  Serious: Yes (Hospitalization)
  Sender: FDA-Public Use
  Company Number: TR-JNJFOC-20140102016

PATIENT
  Age: 51 Year
  Sex: 0

DRUGS (4)
  1. REMICADE [Suspect]
     Indication: ANKYLOSING SPONDYLITIS
     Route: 042
     Dates: start: 20131220, end: 20131220
  2. DELIX [Concomitant]
     Route: 048
  3. LEVOTIRON [Concomitant]
     Route: 048
  4. PANTOPRAZOLE [Concomitant]
     Route: 048

REACTIONS (2)
  - Respiratory distress [Recovered/Resolved]
  - Erythema [Recovered/Resolved]
